FAERS Safety Report 12074283 (Version 2)
Quarter: 2016Q1

REPORT INFORMATION
  Report Type: Spontaneous
  Country: BE (occurrence: BE)
  Receive Date: 20160212
  Receipt Date: 20160223
  Transmission Date: 20160526
  Serious: Yes (Death, Life-Threatening)
  Sender: FDA-Public Use
  Company Number: BE-JNJFOC-20160210142

PATIENT
  Age: 77 Year
  Sex: Female
  Weight: 68 kg

DRUGS (13)
  1. CYMBALTA [Concomitant]
     Active Substance: DULOXETINE HYDROCHLORIDE
     Route: 048
  2. D-CURE [Concomitant]
     Route: 048
  3. LEVEMIR [Concomitant]
     Active Substance: INSULIN DETEMIR
     Route: 065
  4. GLURENORM [Concomitant]
     Route: 048
  5. BURINEX [Concomitant]
     Active Substance: BUMETANIDE
     Route: 048
  6. METFORMINE [Concomitant]
     Active Substance: METFORMIN HYDROCHLORIDE
     Route: 048
  7. IMBRUVICA [Suspect]
     Active Substance: IBRUTINIB
     Indication: MANTLE CELL LYMPHOMA
     Route: 048
     Dates: start: 20160108
  8. LYRICA [Suspect]
     Active Substance: PREGABALIN
     Indication: PRODUCT USED FOR UNKNOWN INDICATION
     Route: 048
     Dates: start: 20151231
  9. TRADONAL [Concomitant]
     Active Substance: TRAMADOL HYDROCHLORIDE
     Dosage: 20 DROPS
     Route: 065
  10. ZOCOR [Concomitant]
     Active Substance: SIMVASTATIN
     Route: 048
  11. NOVORAPID [Concomitant]
     Active Substance: INSULIN ASPART
     Route: 065
  12. ALPRAZOLAM. [Concomitant]
     Active Substance: ALPRAZOLAM
     Route: 048
  13. ALDACTONE [Concomitant]
     Active Substance: SPIRONOLACTONE
     Route: 048

REACTIONS (3)
  - Atrial fibrillation [Unknown]
  - Cardiogenic shock [Fatal]
  - Cardiomyopathy [Unknown]

NARRATIVE: CASE EVENT DATE: 20160208
